FAERS Safety Report 24805633 (Version 1)
Quarter: 2025Q1

REPORT INFORMATION
  Report Type: Spontaneous
  Country: US (occurrence: US)
  Receive Date: 20250103
  Receipt Date: 20250103
  Transmission Date: 20250408
  Serious: Yes (Other)
  Sender: AMGEN
  Company Number: US-AMGEN-USASP2024252088

PATIENT
  Age: 60 Year
  Sex: Female

DRUGS (2)
  1. RITUXIMAB [Suspect]
     Active Substance: RITUXIMAB
     Indication: Laryngeal stenosis
     Route: 065
  2. METHOTREXATE [Concomitant]
     Active Substance: METHOTREXATE
     Indication: Laryngeal stenosis
     Route: 065

REACTIONS (4)
  - Laryngeal stenosis [Unknown]
  - Treatment noncompliance [Unknown]
  - Drug effective for unapproved indication [Unknown]
  - Off label use [Unknown]
